FAERS Safety Report 5474922-7 (Version None)
Quarter: 2007Q3

REPORT INFORMATION
  Report Type: 
  Country: None (occurrence: None)
  Receive Date: 20070831
  Receipt Date: 20070618
  Transmission Date: 20080115
  Serious: No
  Sender: FDA-Public Use
  Company Number: 241103

PATIENT
  Age: 80 Year
  Sex: Female

DRUGS (5)
  1. LUCENTIS [Suspect]
     Indication: DRUG USE FOR UNKNOWN INDICATION
     Dosage: INTRAVITREAL
     Dates: start: 20070409
  2. ASPIRIN [Concomitant]
  3. DIAVAN (DIETARY SUPPLEMENT) (ASCORBIC ACID, CHROMIUM NOS, SELENIUM NOS [Concomitant]
  4. PAXIL [Concomitant]
  5. ATIVAN [Concomitant]

REACTIONS (1)
  - ERYTHEMA [None]
